FAERS Safety Report 7698667-8 (Version None)
Quarter: 2011Q3

REPORT INFORMATION
  Report Type: 
  Country: None (occurrence: None)
  Receive Date: 20110818
  Receipt Date: 20110818
  Transmission Date: 20111222
  Serious: No
  Sender: FDA-Public Use
  Company Number: None

PATIENT
  Age: 58 Year
  Sex: Male

DRUGS (10)
  1. BACLOFEN [Concomitant]
  2. ARMODAFINIL [Concomitant]
  3. LISINOPRIL [Concomitant]
  4. TIZANIDINE HCL [Concomitant]
  5. SIMAVASTATIN [Concomitant]
  6. TESTOSTERONE [Concomitant]
  7. TAMSULOSIN HCL [Concomitant]
  8. AMPYRA [Suspect]
     Indication: MULTIPLE SCLEROSIS
     Dosage: 10MG Q12H ORALLY
     Route: 048
     Dates: start: 20110501, end: 20110701
  9. RAMELTEON [Concomitant]
  10. SOLIFEN [Concomitant]

REACTIONS (2)
  - PRODUCT SOLUBILITY ABNORMAL [None]
  - MEDICATION RESIDUE [None]
